FAERS Safety Report 17034226 (Version 2)
Quarter: 2019Q4

REPORT INFORMATION
  Report Type: Report from Study
  Country: IL (occurrence: IL)
  Receive Date: 20191114
  Receipt Date: 20191126
  Transmission Date: 20200122
  Serious: Yes (Other)
  Sender: FDA-Public Use
  Company Number: IL-BEH-2019109093

PATIENT
  Age: 5 Year
  Sex: Male

DRUGS (2)
  1. FACTOR IX RECOMBINANT (INN) [Suspect]
     Active Substance: COAGULATION FACTOR IX RECOMBINANT HUMAN
     Indication: FACTOR IX DEFICIENCY
     Route: 065
  2. HUMAN FACTOR IX (GENERIC) [Suspect]
     Active Substance: COAGULATION FACTOR IX HUMAN
     Indication: FACTOR IX DEFICIENCY
     Route: 065

REACTIONS (3)
  - Rash [Unknown]
  - Type I hypersensitivity [Unknown]
  - Angioedema [Unknown]
